FAERS Safety Report 6709095-3 (Version None)
Quarter: 2010Q2

REPORT INFORMATION
  Report Type: 
  Country: None (occurrence: None)
  Receive Date: 20100504
  Receipt Date: 20091216
  Transmission Date: 20101027
  Serious: Yes (Other)
  Sender: FDA-Public Use
  Company Number: GB-BAYER-200929086GPV

PATIENT
  Sex: Male

DRUGS (1)
  1. BETAFERON [Suspect]
     Indication: MULTIPLE SCLEROSIS
     Route: 058

REACTIONS (5)
  - DEPRESSED MOOD [None]
  - FATIGUE [None]
  - HEMIPARESIS [None]
  - INJECTION SITE HAEMATOMA [None]
  - JOINT STIFFNESS [None]
